FAERS Safety Report 7988621-0 (Version None)
Quarter: 2011Q4

REPORT INFORMATION
  Report Type: 
  Country: None (occurrence: None)
  Receive Date: 20111218
  Receipt Date: 20060220
  Transmission Date: 20120403
  Serious: Yes (Other)
  Sender: FDA-Public Use
  Company Number: PHHY2006CL009338

PATIENT
  Sex: Female

DRUGS (1)
  1. VALSARTAN [Suspect]

REACTIONS (1)
  - LOWER LIMB FRACTURE [None]
